FAERS Safety Report 5412726-1 (Version None)
Quarter: 2007Q3

REPORT INFORMATION
  Report Type: 
  Country: None (occurrence: None)
  Receive Date: 20070809
  Receipt Date: 20070727
  Transmission Date: 20080115
  Serious: Yes (Other)
  Sender: FDA-Public Use
  Company Number: 015829

PATIENT
  Age: 16 Year
  Sex: Female

DRUGS (1)
  1. CLARAVIS [Suspect]
     Dosage: 40 MG, QD,ORAL
     Route: 048
     Dates: start: 20061110, end: 20070504

REACTIONS (3)
  - DRUG EXPOSURE BEFORE PREGNANCY [None]
  - TRANSMISSION OF DRUG VIA SEMEN [None]
  - UNINTENDED PREGNANCY [None]
